FAERS Safety Report 5171217-6 (Version None)
Quarter: 2006Q4

REPORT INFORMATION
  Report Type: 
  Country: None (occurrence: None)
  Receive Date: 20061213
  Receipt Date: 20060126
  Transmission Date: 20070319
  Serious: Yes (Hospitalization, Other)
  Sender: FDA-Public Use
  Company Number: US-AMGEN-STX166435

PATIENT
  Sex: Female

DRUGS (2)
  1. ENBREL [Suspect]
     Indication: PSORIATIC ARTHROPATHY
     Route: 058
     Dates: start: 20000101, end: 20060103
  2. ALEVE [Concomitant]
     Route: 048
     Dates: start: 20051007, end: 20051201

REACTIONS (5)
  - CONDITION AGGRAVATED [None]
  - HAEMATOCHEZIA [None]
  - PERITONSILLAR ABSCESS [None]
  - PSORIASIS [None]
  - PSORIATIC ARTHROPATHY [None]
